FAERS Safety Report 4485077-X (Version None)
Quarter: 2004Q4

REPORT INFORMATION
  Report Type: 
  Country: None (occurrence: None)
  Receive Date: 20040921
  Receipt Date: 20031002
  Transmission Date: 20050328
  Serious: Yes (Hospitalization)
  Sender: FDA-Public Use
  Company Number: 163-20785-03040326(1)

PATIENT
  Age: 63 Year
  Sex: Female

DRUGS (16)
  1. THALOMID [Suspect]
     Indication: MULTIPLE MYELOMA
     Dosage: 400 MG, QD, ORAL
     Route: 048
     Dates: start: 20030109, end: 20030320
  2. THALOMID [Suspect]
     Indication: MULTIPLE MYELOMA
     Dosage: 400 MG, QD, ORAL
     Route: 048
     Dates: start: 20030620, end: 20030627
  3. CYTOXAN [Suspect]
     Indication: MULTIPLE MYELOMA
     Dosage: 1275 MG, INTRAVENOUS
     Route: 042
     Dates: start: 20030317, end: 20030320
  4. CYTOXAN [Suspect]
     Indication: MULTIPLE MYELOMA
     Dosage: 1275 MG, INTRAVENOUS
     Route: 042
     Dates: start: 20030201
  5. CYTOXAN [Suspect]
     Indication: MULTIPLE MYELOMA
     Dosage: 1275 MG, INTRAVENOUS
     Route: 042
     Dates: start: 20030401
  6. ADRIAMYCIN PFS [Suspect]
     Indication: MULTIPLE MYELOMA
     Dosage: 25 MG, INTRAVENOUS
     Route: 042
     Dates: start: 20030317, end: 20030320
  7. ADRIAMYCIN PFS [Suspect]
     Indication: MULTIPLE MYELOMA
     Dosage: 25 MG, INTRAVENOUS
     Route: 042
     Dates: start: 20030101
  8. DEXAMETHASONE [Suspect]
     Indication: MULTIPLE MYELOMA
     Dosage: 40 MG, X 4D, ORAL
     Route: 048
     Dates: start: 20030317, end: 20030320
  9. DEXAMETHASONE [Suspect]
     Indication: MULTIPLE MYELOMA
     Dosage: 40 MG, X 4D, ORAL
     Route: 048
     Dates: start: 20030101
  10. DEXAMETHASONE [Suspect]
     Indication: MULTIPLE MYELOMA
     Dosage: 40 MG, X 4D, ORAL
     Route: 048
     Dates: start: 20030201
  11. DEXAMETHASONE [Suspect]
     Indication: MULTIPLE MYELOMA
     Dosage: 40 MG, X 4D, ORAL
     Route: 048
     Dates: start: 20030401
  12. MELPHALAN (MELPHALAN) [Suspect]
     Indication: MULTIPLE MYELOMA
     Dosage: 344 MG, QD, INTRAVENOUS
     Route: 042
     Dates: start: 20030501
  13. MELPHALAN (MELPHALAN) [Suspect]
     Indication: MULTIPLE MYELOMA
     Dosage: 344 MG, QD, INTRAVENOUS
     Route: 042
     Dates: start: 20030817
  14. VINCRISTINE [Concomitant]
  15. ETOPOSIDE [Concomitant]
  16. CISPLATIN [Concomitant]

REACTIONS (6)
  - ABDOMINAL PAIN [None]
  - ABDOMINAL TENDERNESS [None]
  - DIVERTICULITIS [None]
  - ENTEROCOCCAL BACTERAEMIA [None]
  - FEBRILE NEUTROPENIA [None]
  - PYREXIA [None]
